FAERS Safety Report 15795787 (Version 1)
Quarter: 2019Q1

REPORT INFORMATION
  Report Type: Report from Study
  Country: ES (occurrence: ES)
  Receive Date: 20190107
  Receipt Date: 20190107
  Transmission Date: 20190417
  Serious: Yes (Hospitalization)
  Sender: FDA-Public Use
  Company Number: ES-MYLANLABS-2018M1098029

PATIENT
  Age: 81 Year
  Sex: Female

DRUGS (7)
  1. CARDURAN [Concomitant]
     Active Substance: DOXAZOSIN MESYLATE
     Dosage: 1-0-0
     Route: 048
     Dates: start: 20170730
  2. ENALAPRIL [Suspect]
     Active Substance: ENALAPRIL
     Indication: PRODUCT USED FOR UNKNOWN INDICATION
     Dosage: 10MG CADA 12 HORAS
     Route: 048
     Dates: start: 20170730
  3. NOVORAPID [Concomitant]
     Active Substance: INSULIN ASPART
     Indication: INSULIN-REQUIRING TYPE 2 DIABETES MELLITUS
     Dosage: 8 INTERNATIONAL UNIT, QD, 2-2-4
     Route: 058
     Dates: start: 20170730
  4. BISOPROLOL [Concomitant]
     Active Substance: BISOPROLOL
     Dosage: 2,5 MG DIA
     Route: 048
     Dates: start: 20170730
  5. LEVEMIR [Concomitant]
     Active Substance: INSULIN DETEMIR
     Indication: INSULIN-REQUIRING TYPE 2 DIABETES MELLITUS
     Dosage: 40 INTERNATIONAL UNIT, QD, 10-0-30
     Route: 058
     Dates: start: 20170730
  6. LOSARTAN. [Interacting]
     Active Substance: LOSARTAN
     Indication: PRODUCT USED FOR UNKNOWN INDICATION
     Dosage: 50 MG DIA
     Route: 048
     Dates: start: 20170730, end: 20171212
  7. APIXABAN [Concomitant]
     Active Substance: APIXABAN
     Dosage: UNK UNK, BID, 1-0-1
     Route: 048
     Dates: start: 20170730

REACTIONS (3)
  - Electrocardiogram abnormal [Recovered/Resolved]
  - Drug interaction [Unknown]
  - Hyperkalaemia [Recovered/Resolved]

NARRATIVE: CASE EVENT DATE: 20171212
